FAERS Safety Report 7107346-7 (Version None)
Quarter: 2010Q4

REPORT INFORMATION
  Report Type: 
  Country: None (occurrence: None)
  Receive Date: 20101111
  Receipt Date: 20101111
  Transmission Date: 20110411
  Serious: No
  Sender: FDA-Public Use
  Company Number: None

PATIENT
  Sex: Female
  Weight: 77.5651 kg

DRUGS (5)
  1. OMEPRAZOLE [Suspect]
     Indication: GASTROOESOPHAGEAL REFLUX DISEASE
     Dosage: 20 MG Q DAY
     Dates: start: 20091125
  2. ADDERALL XR 10 [Concomitant]
  3. ZOLOFT [Concomitant]
  4. MIRALAX [Concomitant]
  5. DETROL LA [Concomitant]

REACTIONS (1)
  - RASH [None]
